FAERS Safety Report 18335348 (Version 1)
Quarter: 2020Q4

REPORT INFORMATION
  Report Type: Spontaneous
  Country: DE (occurrence: DE)
  Receive Date: 20201001
  Receipt Date: 20201001
  Transmission Date: 20210113
  Serious: Yes (Hospitalization)
  Sender: FDA-Public Use
  Company Number: DE-TEVA-2020-DE-1832248

PATIENT
  Age: 86 Year
  Sex: Female
  Weight: 60 kg

DRUGS (3)
  1. CARBIDOPA/LEVODOPA [Suspect]
     Active Substance: CARBIDOPA\LEVODOPA
     Dosage: 4.5 DOSAGE FORMS DAILY; 25|100 MG, 1.5-1.5-1.5-0
     Route: 048
  2. METOPROLOL. [Suspect]
     Active Substance: METOPROLOL
     Dosage: .5 DOSAGE FORMS DAILY; 100 MG, 0.5-0-0-0, SUSTAINED-RELEASE TABLETS
     Route: 048
  3. LEVOTHYROXIN-NATRIUM [Concomitant]
     Active Substance: LEVOTHYROXINE SODIUM
     Dosage: 75 MICROGRAM DAILY; 1-0-0-0
     Route: 048

REACTIONS (5)
  - Musculoskeletal pain [Recovering/Resolving]
  - Mucosal haemorrhage [Recovering/Resolving]
  - Fracture [Recovering/Resolving]
  - Fall [Recovering/Resolving]
  - General physical health deterioration [Recovering/Resolving]
